FAERS Safety Report 4904750-X (Version None)
Quarter: 2006Q1

REPORT INFORMATION
  Report Type: 
  Country: None (occurrence: None)
  Receive Date: 20060208
  Receipt Date: 20050929
  Transmission Date: 20060701
  Serious: No
  Sender: FDA-Public Use
  Company Number: US-GLAXOSMITHKLINE-A0576388A

PATIENT
  Age: 60 Year
  Sex: Female

DRUGS (8)
  1. PAXIL [Suspect]
     Indication: MULTIPLE SCLEROSIS
     Dosage: 20MG PER DAY
     Route: 048
     Dates: start: 20050623, end: 20050824
  2. ASPIRIN [Concomitant]
  3. BACLOFEN [Concomitant]
  4. RANITIDINE HCL [Concomitant]
  5. MULTI-VITAMIN [Concomitant]
  6. ALLEGRA [Concomitant]
  7. ASCORBIC ACID [Concomitant]
  8. XANAX [Concomitant]

REACTIONS (3)
  - DRUG INEFFECTIVE [None]
  - FEELING ABNORMAL [None]
  - MALAISE [None]
